FAERS Safety Report 23352739 (Version 1)
Quarter: 2023Q4

REPORT INFORMATION
  Report Type: Spontaneous
  Country: IT (occurrence: IT)
  Receive Date: 20231230
  Receipt Date: 20231230
  Transmission Date: 20240109
  Serious: Yes (Other)
  Sender: FDA-Public Use
  Company Number: IT-MACLEODS PHARMACEUTICALS US LTD-MAC2023045067

PATIENT

DRUGS (2)
  1. LEVOTHYROXINE [Interacting]
     Active Substance: LEVOTHYROXINE
     Indication: Congenital hypothyroidism
     Dosage: 50 MICROGRAM, QD, 10.1 UG/KG PER DAY, LIQUID
     Route: 065
  2. LEVOTHYROXINE [Interacting]
     Active Substance: LEVOTHYROXINE
     Dosage: 32.2 MICROGRAM, QD, 10.6 UG/KG PER DAY, LIQUID
     Route: 065

REACTIONS (3)
  - Congenital hypothyroidism [Recovered/Resolved]
  - Condition aggravated [Recovered/Resolved]
  - Drug interaction [Recovered/Resolved]
